FAERS Safety Report 8163115-0 (Version None)
Quarter: 2012Q1

REPORT INFORMATION
  Report Type: 
  Country: None (occurrence: None)
  Receive Date: 20120224
  Receipt Date: 20120214
  Transmission Date: 20120608
  Serious: Yes (Hospitalization)
  Sender: FDA-Public Use
  Company Number: US-ABBOTT-12P-163-0900396-00

PATIENT
  Age: 57 Year
  Sex: Female
  Weight: 107 kg

DRUGS (24)
  1. HUMIRA [Suspect]
     Indication: RHEUMATOID ARTHRITIS
     Route: 058
     Dates: start: 20110921
  2. LAMICTAL [Concomitant]
     Indication: BIPOLAR DISORDER
     Route: 048
     Dates: start: 20000101
  3. METHOTREXATE [Suspect]
     Indication: RHEUMATOID ARTHRITIS
     Route: 048
     Dates: start: 20110921
  4. SEROQUEL XR [Concomitant]
     Indication: BIPOLAR DISORDER
     Route: 048
     Dates: start: 20000101
  5. ASPIRIN [Concomitant]
     Indication: HYPOTENSION
     Route: 048
     Dates: start: 20120130
  6. CLOBETASOL 0.05% [Concomitant]
     Indication: PSORIASIS
     Route: 061
     Dates: start: 20110701
  7. GLUCOSAMINE [Concomitant]
     Indication: VITAMIN SUPPLEMENTATION
     Route: 048
     Dates: start: 20000101
  8. VITAMIN D [Concomitant]
     Indication: VITAMIN SUPPLEMENTATION
     Route: 048
     Dates: start: 20090101
  9. HYDROCODONE BITARTRATE [Concomitant]
     Indication: BACK PAIN
     Dosage: RARELY USED
     Route: 048
     Dates: start: 20010101
  10. AMOXICILLIN [Concomitant]
     Indication: TOOTHACHE
     Route: 048
     Dates: start: 20111205
  11. LEVOTHYROXINE SODIUM [Concomitant]
     Indication: HYPOTHYROIDISM
     Route: 048
     Dates: start: 19980101
  12. CELEXA [Concomitant]
     Indication: DEPRESSION
     Route: 048
     Dates: start: 20000101
  13. ASPIRIN [Concomitant]
     Indication: CARDIOVASCULAR EVENT PROPHYLAXIS
     Route: 048
     Dates: start: 20100101, end: 20120130
  14. MULTI-VITAMIN [Concomitant]
     Indication: VITAMIN SUPPLEMENTATION
     Route: 048
     Dates: start: 19800101
  15. FOLIC ACID [Concomitant]
     Indication: VITAMIN SUPPLEMENTATION
     Route: 048
     Dates: start: 20100101
  16. CALCIUM [Concomitant]
     Indication: MINERAL SUPPLEMENTATION
     Route: 048
     Dates: start: 20000101
  17. METHOTREXATE [Concomitant]
     Route: 048
     Dates: start: 20100101, end: 20110911
  18. VITAMIN B COMPLEX CAP [Concomitant]
     Indication: VITAMIN SUPPLEMENTATION
     Route: 048
     Dates: start: 20110101
  19. FISH OIL [Concomitant]
     Indication: SUPPLEMENTATION THERAPY
     Route: 048
     Dates: start: 20080101
  20. FLEXERIL [Concomitant]
     Indication: RHEUMATOID ARTHRITIS
     Route: 048
     Dates: start: 20110715
  21. ACETAMINOPHEN [Concomitant]
     Indication: BACK PAIN
     Dosage: RARELY USED
     Route: 048
     Dates: start: 20010101
  22. BYSTOLIC [Concomitant]
     Indication: HYPERTENSION
     Route: 048
     Dates: start: 20110930, end: 20120131
  23. METHOCARBAMOL [Concomitant]
     Indication: BACK PAIN
     Route: 048
     Dates: start: 20060101
  24. CELEBREX [Concomitant]
     Indication: RHEUMATOID ARTHRITIS
     Route: 048
     Dates: start: 20110601

REACTIONS (1)
  - HYPOTENSION [None]
